FAERS Safety Report 5255620-1 (Version None)
Quarter: 2007Q1

REPORT INFORMATION
  Report Type: 
  Country: None (occurrence: None)
  Receive Date: 20061201
  Receipt Date: 20061006
  Transmission Date: 20070707
  Serious: No
  Sender: FDA-Public Use
  Company Number: 2006MP001114

PATIENT
  Age: 79 Year
  Sex: Male
  Weight: 90.2658 kg

DRUGS (4)
  1. DACOGEN [Suspect]
     Indication: MYELODYSPLASTIC SYNDROME
     Dosage: 20 MG/M**2; QD; IV
     Route: 042
     Dates: start: 20060711, end: 20060714
  2. DACOGEN [Suspect]
     Indication: MYELODYSPLASTIC SYNDROME
     Dosage: 20 MG/M**2; QD; IV
     Route: 042
     Dates: start: 20060801, end: 20060801
  3. PREDNISONE [Concomitant]
  4. NEUPOGEN [Concomitant]

REACTIONS (2)
  - OFF LABEL USE [None]
  - PLATELET COUNT DECREASED [None]
